FAERS Safety Report 9757299 (Version 2)
Quarter: 2014Q1

REPORT INFORMATION
  Report Type: Report from Study
  Country: US (occurrence: US)
  Receive Date: 20131214
  Receipt Date: 20140116
  Transmission Date: 20141002
  Serious: Yes (Death)
  Sender: FDA-Public Use
  Company Number: US-ROCHE-1320233

PATIENT
  Sex: Male

DRUGS (2)
  1. LUCENTIS [Suspect]
     Indication: VENOUS OCCLUSION
     Dosage: LAST DOSE IN MAY 2013
     Route: 050
     Dates: start: 201301
  2. LUCENTIS [Suspect]
     Indication: RETINAL VEIN OCCLUSION

REACTIONS (2)
  - Prostate cancer [Fatal]
  - Adenocarcinoma [Fatal]
